FAERS Safety Report 23604399 (Version 3)
Quarter: 2024Q1

REPORT INFORMATION
  Report Type: Spontaneous
  Country: JP (occurrence: JP)
  Receive Date: 20240307
  Receipt Date: 20240325
  Transmission Date: 20240409
  Serious: Yes (Other)
  Sender: FDA-Public Use
  Company Number: JP-TAKEDA-2024TJP003381

PATIENT
  Age: 28 Year
  Sex: Male

DRUGS (1)
  1. MIDAZOLAM HYDROCHLORIDE [Suspect]
     Active Substance: MIDAZOLAM HYDROCHLORIDE
     Indication: Status epilepticus
     Dosage: 10 MILLIGRAM
     Route: 002

REACTIONS (3)
  - Foreign body aspiration [Unknown]
  - Off label use [Unknown]
  - Product use issue [Unknown]
